FAERS Safety Report 9567702 (Version 1)
Quarter: 2013Q3

REPORT INFORMATION
  Report Type: Spontaneous
  Country: US (occurrence: US)
  Receive Date: 20130930
  Receipt Date: 20130930
  Transmission Date: 20140515
  Serious: No
  Sender: FDA-Public Use
  Company Number: US-AMGEN-USASP2013003056

PATIENT
  Age: 41 Year
  Sex: Male
  Weight: 85.26 kg

DRUGS (11)
  1. ENBREL [Suspect]
     Indication: PRODUCT USED FOR UNKNOWN INDICATION
     Dosage: 50 MG, 2 TIMES/WK, 72 TO 96 HOURS APART
     Route: 058
  2. XYZAL [Concomitant]
     Dosage: 5 MG, UNK
  3. NIASPAN [Concomitant]
     Dosage: 1000 ER
  4. NASACORT AQ [Concomitant]
     Dosage: 55 MUG/AC
  5. ASPIRIN LOW [Concomitant]
     Dosage: 81 MG EC
  6. CALCIUM [Concomitant]
     Dosage: 500 UNK, UNK
  7. DEXILANT [Concomitant]
     Dosage: 30 MG DR
  8. FOLIC ACID [Concomitant]
     Dosage: UNK
  9. MUCINEX DM [Concomitant]
     Dosage: 30-600 ER
  10. SORIATANE [Concomitant]
     Dosage: 10 MG, UNK
  11. LEVOTHYROXIN [Concomitant]
     Dosage: 100 MUG, UNK

REACTIONS (2)
  - Nasopharyngitis [Unknown]
  - Productive cough [Unknown]
